FAERS Safety Report 21936822 (Version 13)
Quarter: 2024Q1

REPORT INFORMATION
  Report Type: Spontaneous
  Country: US (occurrence: US)
  Receive Date: 20230201
  Receipt Date: 20240314
  Transmission Date: 20240410
  Serious: Yes (Life-Threatening, Hospitalization, Other)
  Sender: FDA-Public Use
  Company Number: US-PFIZER INC-PV202300018668

PATIENT
  Age: 74 Year
  Sex: Female

DRUGS (2)
  1. IBRANCE [Suspect]
     Active Substance: PALBOCICLIB
     Indication: Breast cancer metastatic
     Dosage: TAKE 1 PO (ORALLY) DAILY DAYS 1-21, OFF 7 DAYS. REPEAT Q 28 DAYS
     Route: 048
  2. IBRANCE [Suspect]
     Active Substance: PALBOCICLIB
     Indication: Metastases to bone

REACTIONS (16)
  - Hypotension [Unknown]
  - Chest pain [Unknown]
  - Atrioventricular block [Unknown]
  - Hypertension [Recovering/Resolving]
  - Neoplasm progression [Unknown]
  - Illness [Unknown]
  - Dizziness [Unknown]
  - Gastrointestinal disorder [Unknown]
  - Thinking abnormal [Unknown]
  - Disorientation [Unknown]
  - Road traffic accident [Unknown]
  - Asthenia [Unknown]
  - Gait disturbance [Unknown]
  - Tumour marker increased [Unknown]
  - Fatigue [Unknown]
  - Memory impairment [Unknown]

NARRATIVE: CASE EVENT DATE: 20220101
